FAERS Safety Report 13056999 (Version 2)
Quarter: 2016Q4

REPORT INFORMATION
  Report Type: Spontaneous
  Country: US (occurrence: US)
  Receive Date: 20161222
  Receipt Date: 20161227
  Transmission Date: 20170207
  Serious: Yes (Hospitalization, Other)
  Sender: FDA-Public Use
  Company Number: US-BAXALTA-2016BLT009531

PATIENT
  Sex: Female

DRUGS (1)
  1. GAMMAGARD LIQUID [Suspect]
     Active Substance: HUMAN IMMUNOGLOBULIN G
     Indication: PRODUCT USED FOR UNKNOWN INDICATION
     Dosage: 7 G, 1X A WEEK
     Route: 058
     Dates: start: 201412

REACTIONS (9)
  - Diarrhoea [Unknown]
  - Bacterial infection [Unknown]
  - Influenza like illness [Unknown]
  - Anaphylactic reaction [Unknown]
  - Seizure [Unknown]
  - Sinusitis [Unknown]
  - Drug effect decreased [Unknown]
  - Fungal infection [Unknown]
  - Malaise [Unknown]

NARRATIVE: CASE EVENT DATE: 201604
